FAERS Safety Report 4787146-3 (Version None)
Quarter: 2005Q4

REPORT INFORMATION
  Report Type: 
  Country: None (occurrence: None)
  Receive Date: 20051004
  Receipt Date: 20050923
  Transmission Date: 20060501
  Serious: Yes (Death)
  Sender: FDA-Public Use
  Company Number: FR-MERCK-0509FRA00100

PATIENT
  Age: 17 Year
  Sex: Male
  Weight: 64 kg

DRUGS (4)
  1. CASPOFUNGIN ACETATE [Concomitant]
     Indication: ASPERGILLOSIS
     Route: 042
     Dates: start: 20030801, end: 20030801
  2. CASPOFUNGIN ACETATE [Concomitant]
     Route: 042
     Dates: start: 20030801, end: 20030901
  3. AMPHOTERICIN B AND CHOLESTEROL AND DISTEAROYLPHOSPHATIDYLGLYCEROL AND [Concomitant]
     Indication: ASPERGILLOSIS
     Route: 042
     Dates: start: 20030801, end: 20030901
  4. CANCIDAS [Suspect]
     Indication: ANTIFUNGAL PROPHYLAXIS
     Route: 042
     Dates: start: 20030901, end: 20040303

REACTIONS (2)
  - ASPERGILLOSIS [None]
  - GRAFT VERSUS HOST DISEASE [None]
